FAERS Safety Report 8028092-1 (Version None)
Quarter: 2012Q1

REPORT INFORMATION
  Report Type: 
  Country: None (occurrence: None)
  Receive Date: 20120106
  Receipt Date: 20120104
  Transmission Date: 20120608
  Serious: Yes (Other)
  Sender: FDA-Public Use
  Company Number: FR-ROCHE-1006276

PATIENT
  Sex: Female

DRUGS (3)
  1. AVASTIN [Suspect]
     Indication: BREAST CANCER
     Route: 065
     Dates: start: 20110223, end: 20110608
  2. PACLITAXEL [Suspect]
     Indication: BREAST CANCER
     Route: 065
     Dates: start: 20110223, end: 20110608
  3. XELODA [Suspect]
     Indication: BREAST CANCER
     Route: 065
     Dates: start: 20110223, end: 20110608

REACTIONS (1)
  - ANAL FISTULA [None]
